FAERS Safety Report 5086067-9 (Version None)
Quarter: 2006Q3

REPORT INFORMATION
  Report Type: 
  Country: None (occurrence: None)
  Receive Date: 20060818
  Receipt Date: 20060808
  Transmission Date: 20061208
  Serious: Yes (Other)
  Sender: FDA-Public Use
  Company Number: 14483

PATIENT
  Age: 62 Year
  Sex: Male

DRUGS (8)
  1. BLEOMYCIN [Suspect]
     Indication: LYMPHADENOPATHY
  2. BLEOMYCIN [Suspect]
     Indication: METASTASES TO LUNG
  3. BLEOMYCIN [Suspect]
     Indication: TESTIS CANCER
  4. ETOPOSIDE [Concomitant]
  5. CISPLATIN [Concomitant]
  6. VENLAFAXIN [Concomitant]
  7. SALMETEROL [Concomitant]
  8. FLUTICASON [Concomitant]

REACTIONS (2)
  - DERMATITIS [None]
  - DRUG ERUPTION [None]
